FAERS Safety Report 25971513 (Version 1)
Quarter: 2025Q4

REPORT INFORMATION
  Report Type: Spontaneous
  Country: EU (occurrence: EU)
  Receive Date: 20251029
  Receipt Date: 20251029
  Transmission Date: 20260118
  Serious: Yes (Disabling)
  Sender: AMGEN
  Company Number: EU-AMGEN-NORSP2025210059

PATIENT
  Age: 51 Year
  Sex: Male

DRUGS (1)
  1. ADALIMUMAB [Suspect]
     Active Substance: ADALIMUMAB
     Indication: Spondylitis
     Dosage: 40 MILLIGRAM, Q2WK
     Route: 058
     Dates: start: 20250213, end: 20250227

REACTIONS (4)
  - Vision blurred [Recovering/Resolving]
  - Cerebrovascular accident [Recovering/Resolving]
  - Antiphospholipid syndrome [Recovered/Resolved with Sequelae]
  - Discomfort [Recovering/Resolving]

NARRATIVE: CASE EVENT DATE: 20250213
